FAERS Safety Report 24674029 (Version 1)
Quarter: 2024Q4

REPORT INFORMATION
  Report Type: Spontaneous
  Country: AU (occurrence: AU)
  Receive Date: 20241128
  Receipt Date: 20241128
  Transmission Date: 20250115
  Serious: Yes (Other)
  Sender: RANBAXY
  Company Number: AU-SUN PHARMACEUTICAL INDUSTRIES LTD-2024RR-481335

PATIENT
  Age: 22 Year
  Sex: Male

DRUGS (4)
  1. CETIRIZINE [Suspect]
     Active Substance: CETIRIZINE HYDROCHLORIDE
     Indication: Anaphylactic reaction
     Dosage: 20 MILLIGRAM, BID
     Route: 065
  2. IBRUTINIB [Suspect]
     Active Substance: IBRUTINIB
     Indication: Anaphylactic reaction
     Dosage: 560 MILLIGRAM, DAILY
     Route: 065
  3. MONTELUKAST [Suspect]
     Active Substance: MONTELUKAST
     Indication: Anaphylactic reaction
     Dosage: 10 MILLIGRAM, DAILY
     Route: 065
  4. NIZATIDINE [Suspect]
     Active Substance: NIZATIDINE
     Indication: Anaphylactic reaction
     Dosage: 300 MILLIGRAM, BID
     Route: 065

REACTIONS (3)
  - Nausea [Unknown]
  - Fatigue [Unknown]
  - Drug ineffective [Unknown]
